FAERS Safety Report 4860934-0 (Version None)
Quarter: 2005Q4

REPORT INFORMATION
  Report Type: 
  Country: None (occurrence: None)
  Receive Date: 20051220
  Receipt Date: 20041104
  Transmission Date: 20060501
  Serious: Yes (Hospitalization, Other)
  Sender: FDA-Public Use
  Company Number: CA-BRISTOL-MYERS SQUIBB COMPANY-12757399

PATIENT
  Age: 74 Year
  Sex: Female
  Weight: 65 kg

DRUGS (4)
  1. TEQUIN [Suspect]
     Indication: SINUSITIS
     Route: 048
     Dates: start: 20041012, end: 20041017
  2. DYAZIDE [Concomitant]
  3. VASOTEC [Concomitant]
  4. NOVASEN [Concomitant]

REACTIONS (2)
  - BLOOD CREATININE [None]
  - HYPERGLYCAEMIA [None]
